FAERS Safety Report 23436835 (Version 2)
Quarter: 2024Q1

REPORT INFORMATION
  Report Type: Report from Study
  Country: US (occurrence: US)
  Receive Date: 20240124
  Receipt Date: 20240315
  Transmission Date: 20240410
  Serious: Yes (Disabling, Other)
  Sender: FDA-Public Use
  Company Number: US-HORIZON THERAPEUTICS-HZN-2021-009310

PATIENT

DRUGS (33)
  1. TEPEZZA [Suspect]
     Active Substance: TEPROTUMUMAB-TRBW
     Indication: Endocrine ophthalmopathy
     Dosage: FIRST INFUSION
     Route: 042
     Dates: start: 20211201
  2. TEPEZZA [Suspect]
     Active Substance: TEPROTUMUMAB-TRBW
     Dosage: LAST INFUSION
     Route: 042
     Dates: start: 20220524
  3. SODIUM CHLORIDE [Concomitant]
     Active Substance: SODIUM CHLORIDE
     Route: 042
  4. TRANSDERM SCOP [Concomitant]
     Active Substance: SCOPOLAMINE
  5. BSS [Concomitant]
     Active Substance: CALCIUM CHLORIDE\MAGNESIUM CHLORIDE\POTASSIUM CHLORIDE\SODIUM ACETATE\SODIUM CHLORIDE\SODIUM CITRATE
  6. MARCAINE [Concomitant]
     Active Substance: BUPIVACAINE HYDROCHLORIDE
     Dosage: LIDOCAINE 2%/EPINEPHRINE 1:100,000 2 %-1:100,000 5 ML, BUPIVACAINE PF (MARCAINE) 0.5 % 5 ML 10 ML
  7. THROMBIN [Concomitant]
     Active Substance: THROMBIN
  8. BACITRACIN ZINC [Concomitant]
     Active Substance: BACITRACIN ZINC
  9. DEXTROSE [Concomitant]
     Active Substance: DEXTROSE\DEXTROSE MONOHYDRATE
  10. ZOFRAN [Concomitant]
     Active Substance: ONDANSETRON HYDROCHLORIDE
  11. SUBLIMAZE [Concomitant]
     Active Substance: FENTANYL CITRATE
  12. MEDROL [Concomitant]
     Active Substance: METHYLPREDNISOLONE
  13. NORCO [Concomitant]
     Active Substance: ACETAMINOPHEN\HYDROCODONE BITARTRATE
     Dosage: 5/325 MG
  14. TOBRADEX [Concomitant]
     Active Substance: DEXAMETHASONE\TOBRAMYCIN
  15. PROAIR HFA [Concomitant]
     Active Substance: ALBUTEROL SULFATE
  16. XANAX [Concomitant]
     Active Substance: ALPRAZOLAM
  17. CELEXA [Concomitant]
     Active Substance: CITALOPRAM HYDROBROMIDE
  18. ESTRACE [Concomitant]
     Active Substance: ESTRADIOL
  19. SYNTHROID [Concomitant]
     Active Substance: LEVOTHYROXINE SODIUM
  20. ROXICODONE [Concomitant]
     Active Substance: OXYCODONE HYDROCHLORIDE
  21. PROTONIX [Concomitant]
     Active Substance: PANTOPRAZOLE SODIUM
  22. PROMETRIUM [Concomitant]
     Active Substance: PROGESTERONE
  23. ULTRAM [Concomitant]
     Active Substance: TRAMADOL HYDROCHLORIDE
  24. ANCEF [Concomitant]
     Active Substance: CEFAZOLIN SODIUM
  25. Pf [Concomitant]
  26. DIPRIVAN [Concomitant]
     Active Substance: ISOPROPYL ALCOHOL\PROPOFOL
  27. ROCURONIUM [Concomitant]
     Active Substance: ROCURONIUM BROMIDE
  28. DILAUDID [Concomitant]
     Active Substance: HYDROMORPHONE HYDROCHLORIDE
  29. DECADRON [Concomitant]
     Active Substance: DEXAMETHASONE
  30. HALDOL [Concomitant]
     Active Substance: HALOPERIDOL
  31. ROBINUL [Concomitant]
     Active Substance: GLYCOPYRROLATE
  32. BRIDION [Concomitant]
     Active Substance: SUGAMMADEX
  33. COVID-19 vaccine [Concomitant]
     Dosage: UNK
     Dates: start: 20220216

REACTIONS (22)
  - Physical disability [Not Recovered/Not Resolved]
  - Blindness transient [Unknown]
  - Deafness permanent [Not Recovered/Not Resolved]
  - Emotional distress [Not Recovered/Not Resolved]
  - Injury [Not Recovered/Not Resolved]
  - Economic problem [Not Recovered/Not Resolved]
  - Pain [Not Recovered/Not Resolved]
  - Anxiety [Not Recovered/Not Resolved]
  - Impaired quality of life [Not Recovered/Not Resolved]
  - Somnolence [Unknown]
  - Nasopharyngitis [Unknown]
  - COVID-19 [Unknown]
  - Hair growth abnormal [Unknown]
  - Nausea [Unknown]
  - Headache [Unknown]
  - Fatigue [Unknown]
  - Tinnitus [Recovered/Resolved]
  - Diarrhoea [Not Recovered/Not Resolved]
  - Product quality issue [Unknown]
  - Symptom recurrence [Unknown]
  - Blood thyroid stimulating hormone decreased [Unknown]
  - Inappropriate schedule of product administration [Unknown]

NARRATIVE: CASE EVENT DATE: 20220101
